FAERS Safety Report 5121699-0 (Version None)
Quarter: 2006Q4

REPORT INFORMATION
  Report Type: 
  Country: None (occurrence: None)
  Receive Date: 20061006
  Receipt Date: 20060929
  Transmission Date: 20070319
  Serious: Yes (Other)
  Sender: FDA-Public Use
  Company Number: JP-JPN-A200603965

PATIENT
  Age: 43 Year
  Sex: Male

DRUGS (3)
  1. ALKERAN [Suspect]
     Indication: STEM CELL TRANSPLANT
     Dosage: 100MG PER DAY
     Route: 042
     Dates: start: 20060918, end: 20060919
  2. KYTRIL [Concomitant]
     Route: 065
  3. MAXIPIME [Concomitant]
     Route: 042

REACTIONS (1)
  - HYPERAMYLASAEMIA [None]
